FAERS Safety Report 9859236 (Version 2)
Quarter: 2014Q1

REPORT INFORMATION
  Report Type: Spontaneous
  Country: FR (occurrence: FR)
  Receive Date: 20140131
  Receipt Date: 20140318
  Transmission Date: 20141002
  Serious: Yes (Hospitalization)
  Sender: FDA-Public Use
  Company Number: FR-BRISTOL-MYERS SQUIBB COMPANY-20087409

PATIENT
  Age: 60 Year
  Sex: Female

DRUGS (1)
  1. SPRYCEL (CML) TABS 100 MG [Suspect]
     Indication: CHRONIC MYELOID LEUKAEMIA
     Dosage: DRUG RESTARTED WITH 50MG ON: 23SEP2013.29NV13-DEC:20MG
     Route: 048
     Dates: start: 20130111, end: 20130815

REACTIONS (3)
  - Lymphoplasmacytoid lymphoma/immunocytoma [Unknown]
  - Asthenia [Not Recovered/Not Resolved]
  - Nasopharyngitis [Not Recovered/Not Resolved]
